FAERS Safety Report 12360448 (Version 1)
Quarter: 2016Q2

REPORT INFORMATION
  Report Type: Spontaneous
  Country: US (occurrence: US)
  Receive Date: 20160512
  Receipt Date: 20160512
  Transmission Date: 20160815
  Serious: No
  Sender: FDA-Public Use
  Company Number: US-FRI-1000082764

PATIENT

DRUGS (2)
  1. FETZIMA [Suspect]
     Active Substance: LEVOMILNACIPRAN HYDROCHLORIDE
     Indication: FIBROMYALGIA
  2. FETZIMA [Suspect]
     Active Substance: LEVOMILNACIPRAN HYDROCHLORIDE
     Indication: MAJOR DEPRESSION

REACTIONS (3)
  - Off label use [Not Recovered/Not Resolved]
  - Headache [Not Recovered/Not Resolved]
  - Fatigue [Not Recovered/Not Resolved]
